FAERS Safety Report 6503739-7 (Version None)
Quarter: 2009Q4

REPORT INFORMATION
  Report Type: 
  Country: None (occurrence: None)
  Receive Date: 20091216
  Receipt Date: 20091216
  Transmission Date: 20100525
  Serious: Yes (Other)
  Sender: FDA-Public Use
  Company Number: None

PATIENT
  Age: 56 Year
  Sex: Female
  Weight: 58.9676 kg

DRUGS (3)
  1. EPITOL [Suspect]
     Indication: ALOPECIA
     Dosage: 200 MG. 3 TIMES DAILY MOUTH
     Route: 048
     Dates: start: 20091024, end: 20091124
  2. EPITOL [Suspect]
     Indication: CONVULSION
     Dosage: 200 MG. 3 TIMES DAILY MOUTH
     Route: 048
     Dates: start: 20091024, end: 20091124
  3. EPITOL [Suspect]
     Indication: FOAMING AT MOUTH
     Dosage: 200 MG. 3 TIMES DAILY MOUTH
     Route: 048
     Dates: start: 20091024, end: 20091124

REACTIONS (2)
  - ALOPECIA [None]
  - PRODUCT SUBSTITUTION ISSUE [None]
